FAERS Safety Report 23883935 (Version 1)
Quarter: 2024Q2

REPORT INFORMATION
  Report Type: Spontaneous
  Country: US (occurrence: None)
  Receive Date: 20240521
  Receipt Date: 20240521
  Transmission Date: 20240716
  Serious: No
  Sender: FDA-Public Use
  Company Number: None

PATIENT
  Sex: Male

DRUGS (9)
  1. ORENCIA [Suspect]
     Active Substance: ABATACEPT
     Indication: Rheumatoid arthritis
     Route: 058
     Dates: start: 20210825
  2. AMLODIPINE TAB 5MG [Concomitant]
  3. ATENOLOL  TAB 50MG [Concomitant]
  4. CLONIDINE TAB 0.1MG [Concomitant]
  5. GABAPENTIN [Concomitant]
     Active Substance: GABAPENTIN
  6. LEVETIRACETAM [Concomitant]
     Active Substance: LEVETIRACETAM
  7. LOSARTAN/HCT TAB 50-12.5 [Concomitant]
  8. NORTRIPTYLIN  CAP 25MG [Concomitant]
  9. SULFADIAZINE TAB 500MG [Concomitant]

REACTIONS (5)
  - Surgery [None]
  - Intentional dose omission [None]
  - Pain [None]
  - Drug ineffective [None]
  - Loss of personal independence in daily activities [None]
